FAERS Safety Report 5674310-4 (Version None)
Quarter: 2008Q1

REPORT INFORMATION
  Report Type: 
  Country: None (occurrence: None)
  Receive Date: 20080320
  Receipt Date: 20080320
  Transmission Date: 20080703
  Serious: Yes (Other)
  Sender: FDA-Public Use
  Company Number: None

PATIENT
  Age: 70 Year
  Sex: Female
  Weight: 71.3508 kg

DRUGS (2)
  1. HEPARIN [Suspect]
     Indication: HAEMODIALYSIS
     Dosage: 2000 UNIT BOLUS HEMODIALYSIS
     Dates: start: 20060411, end: 20080201
  2. HEPARIN [Suspect]
     Indication: HAEMODIALYSIS
     Dosage: 500 UNIT/HR CONT INFUSION HEMODIALYSIS
     Dates: start: 20060411, end: 20080201

REACTIONS (7)
  - HEADACHE [None]
  - HYPOAESTHESIA [None]
  - HYPOTENSION [None]
  - NAUSEA [None]
  - PARAESTHESIA [None]
  - SENSATION OF HEAVINESS [None]
  - TONGUE DISORDER [None]
